FAERS Safety Report 24818249 (Version 1)
Quarter: 2025Q1

REPORT INFORMATION
  Report Type: Spontaneous
  Country: US (occurrence: US)
  Receive Date: 20250108
  Receipt Date: 20250108
  Transmission Date: 20250409
  Serious: Yes (Other)
  Sender: COOPERSURGICAL
  Company Number: US-COOPERSURGICAL, INC.-2024CPS004258

PATIENT
  Age: 35 Year
  Sex: Female
  Weight: 81.633 kg

DRUGS (2)
  1. PARAGARD T 380A [Suspect]
     Active Substance: COPPER
     Indication: Contraception
     Route: 015
     Dates: start: 20121105, end: 20200306
  2. INSULIN NOS [Concomitant]
     Active Substance: INSULIN NOS
     Dates: start: 20120101

REACTIONS (12)
  - Uterine leiomyoma calcification [Unknown]
  - Device breakage [Recovered/Resolved]
  - Foreign body in reproductive tract [Recovered/Resolved]
  - Complication of device removal [Recovered/Resolved]
  - Embedded device [Recovered/Resolved]
  - Hypothyroidism [Unknown]
  - Emotional disorder [Unknown]
  - Fear [Recovered/Resolved]
  - Obesity [Unknown]
  - Abnormal uterine bleeding [Unknown]
  - Device dislocation [Recovered/Resolved]
  - Pain [Recovered/Resolved]

NARRATIVE: CASE EVENT DATE: 20121201
